FAERS Safety Report 6939911-1 (Version None)
Quarter: 2010Q3

REPORT INFORMATION
  Report Type: 
  Country: None (occurrence: None)
  Receive Date: 20100825
  Receipt Date: 20100817
  Transmission Date: 20110219
  Serious: Yes (Other)
  Sender: FDA-Public Use
  Company Number: US-JNJFOC-20100510382

PATIENT
  Sex: Male

DRUGS (4)
  1. CHILDREN'S TYLENOL SUSPENSION [Suspect]
     Indication: PHARYNGITIS STREPTOCOCCAL
  2. CHILDREN'S TYLENOL SUSPENSION [Suspect]
     Indication: PYREXIA
  3. CHILDREN'S MOTRIN [Suspect]
     Indication: PHARYNGITIS STREPTOCOCCAL
     Route: 065
  4. CHILDREN'S MOTRIN [Suspect]
     Indication: PYREXIA
     Route: 065

REACTIONS (5)
  - ABDOMINAL PAIN UPPER [None]
  - ASTHMA [None]
  - HEADACHE [None]
  - PRODUCT QUALITY ISSUE [None]
  - VOMITING [None]
